FAERS Safety Report 12661923 (Version 1)
Quarter: 2016Q3

REPORT INFORMATION
  Report Type: Spontaneous
  Country: MX (occurrence: MX)
  Receive Date: 20160817
  Receipt Date: 20160817
  Transmission Date: 20161109
  Serious: No
  Sender: FDA-Public Use
  Company Number: MX-ELI_LILLY_AND_COMPANY-MX201608007564

PATIENT
  Age: 54 Year
  Sex: Male

DRUGS (2)
  1. CIALIS [Suspect]
     Active Substance: TADALAFIL
     Dosage: 5 MG, QD
     Route: 048
  2. CIALIS [Suspect]
     Active Substance: TADALAFIL
     Indication: ERECTILE DYSFUNCTION
     Dosage: 20 MG, PRN
     Route: 048

REACTIONS (7)
  - Headache [Unknown]
  - Back pain [Unknown]
  - Tachycardia [Unknown]
  - Erectile dysfunction [Unknown]
  - Vision blurred [Unknown]
  - Prostatitis [Unknown]
  - Benign prostatic hyperplasia [Unknown]
